FAERS Safety Report 7164811-4 (Version None)
Quarter: 2010Q4

REPORT INFORMATION
  Report Type: 
  Country: None (occurrence: None)
  Receive Date: 20101215
  Receipt Date: 20101207
  Transmission Date: 20110411
  Serious: Yes (Other)
  Sender: FDA-Public Use
  Company Number: BR-PFIZER INC-2010143813

PATIENT
  Age: 58 Year
  Sex: Male

DRUGS (1)
  1. ALPRAZOLAM [Suspect]
     Dosage: 0.5 MG, 1X/DAY
     Route: 048
     Dates: start: 20000901

REACTIONS (1)
  - HEARING IMPAIRED [None]
